FAERS Safety Report 9707292 (Version 1)
Quarter: 2013Q4

REPORT INFORMATION
  Report Type: Spontaneous
  Country: NL (occurrence: NL)
  Receive Date: 20131125
  Receipt Date: 20131125
  Transmission Date: 20140711
  Serious: Yes (Other)
  Sender: FDA-Public Use
  Company Number: NL-MYLANLABS-2013S1025912

PATIENT
  Age: 36 Year
  Sex: Male

DRUGS (5)
  1. QUETIAPINE [Suspect]
     Route: 065
  2. VENLAFAXINE [Concomitant]
     Route: 065
  3. PROMETHAZINE [Concomitant]
     Route: 065
  4. LORAZEPAM [Concomitant]
     Route: 065
  5. TEMAZEPAM [Concomitant]
     Route: 065

REACTIONS (2)
  - Secondary adrenocortical insufficiency [Recovered/Resolved]
  - Hypothyroidism [Recovered/Resolved]
